FAERS Safety Report 20020488 (Version 2)
Quarter: 2021Q4

REPORT INFORMATION
  Report Type: Spontaneous
  Country: AR (occurrence: AR)
  Receive Date: 20211101
  Receipt Date: 20211116
  Transmission Date: 20220303
  Serious: Yes (Hospitalization, Other)
  Sender: FDA-Public Use
  Company Number: AR-PFIZER INC-202101408746

PATIENT
  Age: 31 Year
  Sex: Female

DRUGS (2)
  1. XALKORI [Suspect]
     Active Substance: CRIZOTINIB
     Indication: Non-small cell lung cancer metastatic
     Dosage: 250 MG, UNSPECIFIED DOSING FREQUENCY
     Route: 048
     Dates: start: 20210513, end: 202109
  2. XALKORI [Suspect]
     Active Substance: CRIZOTINIB
     Dosage: UNK
     Dates: start: 202109, end: 202110

REACTIONS (1)
  - Drug-induced liver injury [Not Recovered/Not Resolved]
